FAERS Safety Report 9686139 (Version 1)
Quarter: 2013Q4

REPORT INFORMATION
  Report Type: Spontaneous
  Country: TR (occurrence: TR)
  Receive Date: 20131113
  Receipt Date: 20131113
  Transmission Date: 20140711
  Serious: Yes (Hospitalization, Other)
  Sender: FDA-Public Use
  Company Number: TR-ELI_LILLY_AND_COMPANY-TR201311002303

PATIENT
  Age: 23 Year
  Sex: Male

DRUGS (5)
  1. OLANZAPINE [Suspect]
     Indication: BIPOLAR DISORDER
     Dosage: 20 MG, QD
  2. OLANZAPINE [Suspect]
     Dosage: 10 MG, QD
  3. OLANZAPINE [Suspect]
     Dosage: 10 MG, QD
  4. LITHIUM [Suspect]
     Indication: BIPOLAR DISORDER
     Dosage: 1200 MG, QD
  5. VALPROIC ACID [Concomitant]
     Indication: BIPOLAR DISORDER
     Dosage: 1000 MG, QD

REACTIONS (1)
  - Cerebellar syndrome [Recovered/Resolved]
